FAERS Safety Report 6391345-7 (Version None)
Quarter: 2009Q4

REPORT INFORMATION
  Report Type: 
  Country: None (occurrence: None)
  Receive Date: 20091007
  Receipt Date: 20090928
  Transmission Date: 20100525
  Serious: Yes (Other)
  Sender: FDA-Public Use
  Company Number: GB-JNJFOC-20090809460

PATIENT
  Sex: Female
  Weight: 50 kg

DRUGS (8)
  1. REMICADE [Suspect]
     Route: 042
  2. REMICADE [Suspect]
     Route: 042
  3. REMICADE [Suspect]
     Route: 042
  4. REMICADE [Suspect]
     Indication: CROHN'S DISEASE
     Route: 042
  5. LANSOPRAZOLE [Concomitant]
  6. COLIFOAM ENEMA [Concomitant]
  7. AZATHIOPRINE [Concomitant]
  8. PIRITON [Concomitant]
     Indication: PREMEDICATION

REACTIONS (6)
  - BRONCHOSPASM [None]
  - CHEST PAIN [None]
  - FLUSHING [None]
  - HYPERTENSION [None]
  - ILEOSTOMY [None]
  - INFUSION RELATED REACTION [None]
